FAERS Safety Report 16181960 (Version 1)
Quarter: 2019Q2

REPORT INFORMATION
  Report Type: Report from Study
  Country: GB (occurrence: GB)
  Receive Date: 20190410
  Receipt Date: 20190410
  Transmission Date: 20190711
  Serious: Yes (Hospitalization)
  Sender: FDA-Public Use
  Company Number: GB-JNJFOC-20190310148

PATIENT
  Age: 75 Year
  Sex: Female

DRUGS (11)
  1. STELARA [Suspect]
     Active Substance: USTEKINUMAB
     Indication: TEMPORAL ARTERITIS
     Route: 058
     Dates: start: 20190306
  2. ROSUVASTATIN. [Concomitant]
     Active Substance: ROSUVASTATIN
     Route: 050
  3. BISOPROLOL [Concomitant]
     Active Substance: BISOPROLOL
     Route: 050
  4. CALCICHEW [Concomitant]
     Active Substance: CALCIUM CARBONATE
     Route: 050
  5. DELTACORTRIL [Concomitant]
     Active Substance: PREDNISOLONE
     Route: 050
  6. RAMIPRIL. [Concomitant]
     Active Substance: RAMIPRIL
     Route: 050
  7. FUROSEMIDE. [Concomitant]
     Active Substance: FUROSEMIDE
     Route: 050
  8. LANSOPRAZOLE. [Concomitant]
     Active Substance: LANSOPRAZOLE
     Route: 050
  9. ALENDRONIC ACID [Concomitant]
     Active Substance: ALENDRONIC ACID
     Route: 050
  10. ASPIRIN. [Concomitant]
     Active Substance: ASPIRIN
     Route: 050
  11. ELTROXIN [Concomitant]
     Active Substance: LEVOTHYROXINE
     Route: 050

REACTIONS (3)
  - Infection [Not Recovered/Not Resolved]
  - Off label use [Unknown]
  - Product use in unapproved indication [Unknown]

NARRATIVE: CASE EVENT DATE: 20190306
